FAERS Safety Report 23685244 (Version 1)
Quarter: 2024Q1

REPORT INFORMATION
  Report Type: Spontaneous
  Country: CN (occurrence: CN)
  Receive Date: 20240329
  Receipt Date: 20240329
  Transmission Date: 20240409
  Serious: Yes (Hospitalization, Other)
  Sender: FDA-Public Use
  Company Number: CN-AMGEN-CHNSP2024062049

PATIENT
  Age: 6 Year
  Sex: Female

DRUGS (4)
  1. BLINCYTO [Suspect]
     Active Substance: BLINATUMOMAB
     Indication: Acute lymphocytic leukaemia
     Dosage: 4.19 MICROGRAM, ADMINISTERED CONTINUOUSLY 24 HOURS A DAY, DRIP
     Route: 042
     Dates: start: 20240314, end: 20240315
  2. BLINCYTO [Suspect]
     Active Substance: BLINATUMOMAB
     Dosage: 8.38 MICROGRAM, ADMINISTERED CONTINUOUSLY 24 HOURS A DAY, DRIP
     Route: 042
     Dates: start: 20240315, end: 20240316
  3. BLINCYTO [Suspect]
     Active Substance: BLINATUMOMAB
     Dosage: 12.57 MICROGRAM, ADMINISTERED CONTINUOUSLY 24 HOURS A DAY, DRIP
     Route: 042
     Dates: start: 20240316, end: 20240317
  4. BLINCYTO [Suspect]
     Active Substance: BLINATUMOMAB
     Dosage: 12.57 MICROGRAM, ADMINISTERED CONTINUOUSLY 24 HOURS A DAY, DRIP
     Route: 042
     Dates: start: 20240317, end: 20240318

REACTIONS (1)
  - Liver injury [Recovering/Resolving]

NARRATIVE: CASE EVENT DATE: 20240318
